FAERS Safety Report 9586178 (Version 1)
Quarter: 2013Q4

REPORT INFORMATION
  Report Type: Spontaneous
  Country: US (occurrence: None)
  Receive Date: 20131001
  Receipt Date: 20131001
  Transmission Date: 20140711
  Serious: Yes (Other)
  Sender: FDA-Public Use
  Company Number: 2013AP006215

PATIENT
  Sex: Female

DRUGS (5)
  1. METFORMIN (METFORMIN) [Suspect]
     Indication: DIABETES MELLITUS
  2. GLYBURIDE [Suspect]
  3. METOCLOPRAMIDE [Suspect]
     Indication: NAUSEA
  4. LORAZEPAM [Suspect]
     Indication: INSOMNIA
  5. ANTIHYPERSENSITIVE [Suspect]
     Indication: HYPERTENSION

REACTIONS (9)
  - Nausea [None]
  - Dizziness [None]
  - Fall [None]
  - Confusional state [None]
  - Decreased appetite [None]
  - Diabetes mellitus inadequate control [None]
  - Drug ineffective [None]
  - Fatigue [None]
  - Hypotension [None]
